FAERS Safety Report 15624473 (Version 1)
Quarter: 2018Q4

REPORT INFORMATION
  Report Type: Other
  Country: DE (occurrence: DE)
  Receive Date: 20181116
  Receipt Date: 20181116
  Transmission Date: 20190205
  Serious: Yes (Other)
  Sender: FDA-Public Use
  Company Number: DE-ASTELLAS-2018US048465

PATIENT
  Age: 1 Year
  Sex: Male
  Weight: 13 kg

DRUGS (64)
  1. URBASON                            /00049601/ [Suspect]
     Active Substance: METHYLPREDNISOLONE
     Indication: IMMUNE SYSTEM DISORDER
     Dosage: UNK UNK, UNKNOWN FREQ.
     Route: 042
     Dates: start: 19961206, end: 19961206
  2. PENTAGLOBIN [Suspect]
     Active Substance: HUMAN IMMUNOGLOBULIN G
     Dosage: UNK, UNKNOWN FREQ.
     Route: 042
     Dates: start: 19961210, end: 19961210
  3. G-CSF [Suspect]
     Active Substance: GRANULOCYTE COLONY-STIMULATING FACTOR NOS
     Indication: IMMUNE SYSTEM DISORDER
     Dosage: UNK UNK, UNKNOWN FREQ.
     Route: 042
     Dates: start: 19961125
  4. PHYTOMENADIONE [Suspect]
     Active Substance: PHYTONADIONE
     Indication: HYPOVITAMINOSIS
     Dosage: UNK, UNKNOWN FREQ.
     Route: 042
  5. METHOTREXATE (METHOTREXATE SODIUM) [Suspect]
     Active Substance: METHOTREXATE SODIUM
     Indication: IMMUNE SYSTEM DISORDER
     Dosage: UNK, UNKNOWN FREQ.
     Route: 042
     Dates: start: 19961127, end: 19961127
  6. SOBELIN                            /00166002/ [Suspect]
     Active Substance: CLINDAMYCIN HYDROCHLORIDE
     Indication: SOFT TISSUE DISORDER
     Dosage: UNK, UNKNOWN FREQ.
     Route: 042
  7. LUMINAL                            /00023201/ [Suspect]
     Active Substance: PHENOBARBITAL SODIUM
     Indication: SEIZURE PROPHYLAXIS
     Dosage: UNK, UNKNOWN FREQ.
     Route: 042
     Dates: start: 19961209
  8. TROPHICARD [Concomitant]
     Active Substance: MAGNESIUM ASPARTATE\POTASSIUM ASPARTATE
     Indication: PRODUCT USED FOR UNKNOWN INDICATION
     Dosage: UNK UNK, UNKNOWN FREQ.
     Route: 065
     Dates: start: 19961207, end: 19961207
  9. MAGNESIUM ASPARTATE [Concomitant]
     Active Substance: MAGNESIUM ASPARTATE
     Indication: PRODUCT USED FOR UNKNOWN INDICATION
     Dosage: UNK UNK, UNKNOWN FREQ.
     Route: 065
  10. KONAKION [Concomitant]
     Active Substance: PHYTONADIONE
     Indication: PRODUCT USED FOR UNKNOWN INDICATION
     Dosage: UNK UNK, UNKNOWN FREQ.
     Route: 065
     Dates: start: 19961118, end: 19961210
  11. AMPHO-MORONAL [Concomitant]
     Active Substance: AMPHOTERICIN B
     Indication: PRODUCT USED FOR UNKNOWN INDICATION
     Dosage: UNK UNK, UNKNOWN FREQ.
     Route: 065
     Dates: start: 19961115, end: 19961115
  12. PARACETAMOL [Suspect]
     Active Substance: ACETAMINOPHEN
     Indication: PAIN
     Dates: start: 19961122, end: 19961126
  13. FENTANYL. [Suspect]
     Active Substance: FENTANYL
     Indication: SEDATION
     Dosage: UNK, UNKNOWN FREQ.
     Route: 042
     Dates: start: 19961209
  14. MUCOSOLVAN [Suspect]
     Active Substance: AMBROXOL HYDROCHLORIDE
     Indication: UNEVALUABLE EVENT
     Dosage: UNK, UNKNOWN FREQ.
     Route: 042
     Dates: start: 19961211
  15. MORPHIN HCL [Suspect]
     Active Substance: MORPHINE HYDROCHLORIDE
     Indication: PAIN
     Dosage: UNK, UNKNOWN FREQ.
     Route: 042
     Dates: start: 19961207, end: 19961209
  16. ARTERENOL [Suspect]
     Active Substance: NOREPINEPHRINE HYDROCHLORIDE, (+/-)-
     Indication: SHOCK
     Dosage: UNK UNK, UNKNOWN FREQ.
     Route: 042
     Dates: start: 19961210
  17. FORTUM                             /00559701/ [Suspect]
     Active Substance: CEFTAZIDIME
     Indication: UPPER RESPIRATORY TRACT INFECTION
     Dosage: UNK, UNKNOWN FREQ.
     Route: 042
     Dates: start: 19961122, end: 19961130
  18. INZOLEN [Concomitant]
     Active Substance: MAGNESIUM ASPARTATE\POTASSIUM ASPARTATE
     Indication: PRODUCT USED FOR UNKNOWN INDICATION
     Dosage: UNK UNK, UNKNOWN FREQ.
     Route: 065
     Dates: start: 19961126
  19. SODIUM CHLORIDE. [Concomitant]
     Active Substance: SODIUM CHLORIDE
     Indication: PRODUCT USED FOR UNKNOWN INDICATION
     Dosage: UNK UNK, UNKNOWN FREQ.
     Route: 065
     Dates: start: 19961116, end: 19961125
  20. AMINOPAED [Suspect]
     Active Substance: AMINO ACIDS
     Indication: PRODUCT USED FOR UNKNOWN INDICATION
     Dosage: UNK UNK, UNKNOWN FREQ.
     Route: 065
     Dates: start: 19961126
  21. ATG                                /00575401/ [Concomitant]
     Active Substance: LAPINE T-LYMPHOCYTE IMMUNE GLOBULIN
     Indication: PRODUCT USED FOR UNKNOWN INDICATION
     Dosage: UNK UNK, UNKNOWN FREQ.
     Route: 065
     Dates: start: 19961123, end: 19961125
  22. AMPHOTERICIN B, LIPOSOME [Suspect]
     Active Substance: AMPHOTERICIN B
     Indication: UPPER RESPIRATORY TRACT INFECTION
     Route: 042
     Dates: start: 19961123
  23. HYDROMEDIN [Suspect]
     Active Substance: ETHACRYNIC ACID
     Indication: OEDEMA
     Dosage: UNK, UNKNOWN FREQ.
     Route: 042
     Dates: start: 19961212
  24. BERINERT HS [COMPLEMENT C1 ESTERASE INHIBITOR] [Suspect]
     Active Substance: HUMAN C1-ESTERASE INHIBITOR
     Indication: ANGIOEDEMA
     Dosage: UNK, UNKNOWN FREQ.
     Route: 042
     Dates: start: 19961211
  25. ZOVIRAX GLAXOSMITHKLINE /00587301/ [Suspect]
     Active Substance: ACYCLOVIR
     Indication: INFECTION
     Dosage: UNK, UNKNOWN FREQ.
     Route: 042
     Dates: start: 19961127
  26. MYLERAN [Concomitant]
     Active Substance: BUSULFAN
     Indication: PRODUCT USED FOR UNKNOWN INDICATION
     Dosage: UNK UNK, UNKNOWN FREQ.
     Route: 065
     Dates: start: 19961118, end: 19961121
  27. CLONT                              /00012501/ [Concomitant]
     Active Substance: METRONIDAZOLE
     Indication: PRODUCT USED FOR UNKNOWN INDICATION
     Dosage: UNK UNK, UNKNOWN FREQ.
     Route: 065
     Dates: start: 19961118
  28. TAVEGIL                            /00137201/ [Concomitant]
     Active Substance: CLEMASTINE FUMARATE
     Indication: PRODUCT USED FOR UNKNOWN INDICATION
     Dosage: UNK UNK, UNKNOWN FREQ.
     Route: 065
     Dates: start: 19961123, end: 19961125
  29. NEUPOGEN [Suspect]
     Active Substance: FILGRASTIM
     Indication: BONE MARROW TRANSPLANT
     Dosage: UNK UNK, UNKNOWN FREQ.
     Route: 042
     Dates: start: 19961125
  30. DOPAMINE [Suspect]
     Active Substance: DOPAMINE\DOPAMINE HYDROCHLORIDE
     Indication: ACUTE KIDNEY INJURY
     Dosage: UNK, UNKNOWN FREQ.
     Route: 042
     Dates: start: 19961210
  31. LASIX [Suspect]
     Active Substance: FUROSEMIDE
     Dosage: UNK, UNKNOWN FREQ.
     Route: 042
     Dates: start: 19961124, end: 19961126
  32. LASIX [Suspect]
     Active Substance: FUROSEMIDE
     Dosage: UNK, UNKNOWN FREQ.
     Route: 042
     Dates: start: 19961128, end: 19961128
  33. SOBELIN SOLUBILE [Suspect]
     Active Substance: CLINDAMYCIN PHOSPHATE
     Indication: SOFT TISSUE DISORDER
     Dosage: UNK, UNKNOWN FREQ.
     Route: 042
  34. PANCURONIUM [Suspect]
     Active Substance: PANCURONIUM
     Indication: MUSCLE RELAXANT THERAPY
     Dosage: UNK, UNKNOWN FREQ.
     Route: 042
     Dates: start: 19961213, end: 19961213
  35. FORTECORTIN                        /00016001/ [Concomitant]
     Active Substance: DEXAMETHASONE
     Indication: PRODUCT USED FOR UNKNOWN INDICATION
     Dosage: UNK UNK, UNKNOWN FREQ.
     Route: 065
     Dates: start: 19961118, end: 19961123
  36. RETINOL [Suspect]
     Active Substance: RETINOL
     Indication: HYPOVITAMINOSIS
     Dosage: UNK, UNKNOWN FREQ.
     Route: 065
  37. MICRONEFRIN /00003902/ [Suspect]
     Active Substance: EPINEPHRINE HYDROCHLORIDE
     Indication: ANAPHYLACTIC REACTION
     Dosage: UNK, UNKNOWN FREQ.
     Route: 042
     Dates: start: 19961206
  38. MIDAZOLAM [Suspect]
     Active Substance: MIDAZOLAM HYDROCHLORIDE
     Indication: SEDATION
     Dosage: UNK, UNKNOWN FREQ.
     Route: 042
     Dates: start: 19961209
  39. ENDOXAN                            /00021101/ [Concomitant]
     Active Substance: CYCLOPHOSPHAMIDE
     Indication: PRODUCT USED FOR UNKNOWN INDICATION
     Dosage: UNK UNK, UNKNOWN FREQ.
     Route: 065
     Dates: start: 19961123, end: 19961124
  40. KALINOR-BRAUSETABLETTEN [Concomitant]
     Active Substance: POTASSIUM CARBONATE\POTASSIUM CITRATE
     Indication: PRODUCT USED FOR UNKNOWN INDICATION
     Dosage: UNK UNK, UNKNOWN FREQ.
     Route: 065
     Dates: start: 19961119, end: 19961120
  41. VANCOMYCIN ABBOTT [Concomitant]
     Indication: PRODUCT USED FOR UNKNOWN INDICATION
     Dosage: UNK UNK, UNKNOWN FREQ.
     Route: 065
     Dates: start: 19961122
  42. UROMITEXAN [Concomitant]
     Active Substance: MESNA
     Indication: PRODUCT USED FOR UNKNOWN INDICATION
     Dosage: UNK UNK, UNKNOWN FREQ.
     Route: 065
     Dates: start: 19961123, end: 19961124
  43. SANDIMMUN OPTORAL [Concomitant]
     Active Substance: CYCLOSPORINE
     Indication: PRODUCT USED FOR UNKNOWN INDICATION
     Dosage: UNK UNK, UNKNOWN FREQ.
     Route: 065
     Dates: start: 19961115, end: 19961115
  44. TRIGLOBE [Suspect]
     Active Substance: SULFADIAZINE\TRIMETHOPRIM
     Indication: ANTIBIOTIC THERAPY
     Dosage: UNK UNK, UNKNOWN FREQ.
     Route: 048
     Dates: start: 19961122, end: 19961127
  45. VP 16-213 [Suspect]
     Active Substance: ETOPOSIDE
     Indication: IMMUNE SYSTEM DISORDER
     Dosage: UNK UNK, UNKNOWN FREQ.
     Route: 042
     Dates: start: 19961122, end: 19961122
  46. PENTAGLOBIN [Suspect]
     Active Substance: HUMAN IMMUNOGLOBULIN G
     Indication: IMMUNOGLOBULINS ABNORMAL
     Dosage: UNK, UNKNOWN FREQ.
     Route: 042
     Dates: start: 19961129, end: 19961129
  47. BACTRIM [Suspect]
     Active Substance: SULFAMETHOXAZOLE\TRIMETHOPRIM
     Indication: ANTIBIOTIC THERAPY
     Dosage: UNK, UNKNOWN FREQ.
     Route: 042
     Dates: start: 19961129
  48. DIFLUCAN [Suspect]
     Active Substance: FLUCONAZOLE
     Indication: CANDIDA INFECTION
     Dosage: UNK, UNKNOWN FREQ.
     Route: 048
     Dates: start: 19961117, end: 19961125
  49. ZOFRAN [Concomitant]
     Active Substance: ONDANSETRON HYDROCHLORIDE
     Indication: PRODUCT USED FOR UNKNOWN INDICATION
     Dosage: UNK UNK, UNKNOWN FREQ.
     Route: 065
     Dates: start: 19961118, end: 19961119
  50. CIPROBAY HC [Concomitant]
     Active Substance: CIPROFLOXACIN HYDROCHLORIDE\HYDROCORTISONE
     Indication: PRODUCT USED FOR UNKNOWN INDICATION
     Dosage: UNK UNK, UNKNOWN FREQ.
     Route: 065
     Dates: start: 19961116, end: 19961121
  51. DEXAMETHASONE. [Concomitant]
     Active Substance: DEXAMETHASONE
     Indication: PRODUCT USED FOR UNKNOWN INDICATION
     Dosage: UNK UNK, UNKNOWN FREQ.
     Route: 065
     Dates: end: 19961125
  52. LASIX [Suspect]
     Active Substance: FUROSEMIDE
     Indication: OEDEMA
     Dosage: UNK, UNKNOWN FREQ.
     Route: 042
     Dates: start: 19961201
  53. ZIENAM [Suspect]
     Active Substance: CILASTATIN SODIUM\IMIPENEM
     Indication: ANTIBIOTIC THERAPY
     Dosage: UNK UNK, UNKNOWN FREQ.
     Route: 042
     Dates: start: 19961201
  54. ZANTAC [Suspect]
     Active Substance: RANITIDINE HYDROCHLORIDE
     Indication: PROPHYLAXIS
     Dosage: UNK, UNKNOWN FREQ.
     Route: 042
     Dates: start: 19961210, end: 19961211
  55. PHENHYDAN /00017403/ [Suspect]
     Active Substance: PHENYTOIN
     Indication: SEIZURE PROPHYLAXIS
     Dosage: UNK UNK, UNKNOWN FREQ.
     Route: 048
     Dates: start: 19961114, end: 19961124
  56. TOBRAMYCINE [Suspect]
     Active Substance: TOBRAMYCIN SULFATE
     Indication: UPPER RESPIRATORY TRACT INFECTION
     Dosage: UNK UNK, UNKNOWN FREQ.
     Route: 042
     Dates: start: 19961124
  57. ACC ACUTE [Suspect]
     Active Substance: ACETYLCYSTEINE
     Indication: UNEVALUABLE EVENT
     Dosage: UNK, UNKNOWN FREQ.
     Route: 042
     Dates: start: 19961130, end: 19961130
  58. ALDACTONE                          /00252502/ [Suspect]
     Active Substance: CANRENOATE POTASSIUM
     Indication: ASCITES
     Dosage: UNK, UNKNOWN FREQ.
     Route: 042
  59. AMPHOTERICIN B, LIPOSOME [Suspect]
     Active Substance: AMPHOTERICIN B
     Dosage: UNK UNK, UNKNOWN FREQ.
     Route: 042
     Dates: start: 19961124
  60. THIAMINE MONONITRATE [Suspect]
     Active Substance: THIAMINE MONONITRATE
     Indication: HYPOVITAMINOSIS
     Dosage: UNK UNK, UNKNOWN FREQ.
     Route: 042
  61. NOVALGIN (METAMIZOLE SODIUM) [Suspect]
     Active Substance: METAMIZOLE SODIUM
     Indication: PYREXIA
     Dosage: UNK, UNKNOWN FREQ.
     Route: 042
  62. PROSTAVASIN [Suspect]
     Active Substance: ALPROSTADIL ALFADEX
     Indication: VASCULAR OCCLUSION
     Dosage: UNK, UNKNOWN FREQ.
     Route: 042
     Dates: start: 19961205
  63. MICRONEFRIN                        /00003902/ [Suspect]
     Active Substance: EPINEPHRINE HYDROCHLORIDE
     Indication: STRIDOR
     Dosage: UNK, UNKNOWN FREQ.
     Route: 055
     Dates: start: 19961206, end: 19961206
  64. XYLOMETAZOLINE [Concomitant]
     Active Substance: XYLOMETAZOLINE
     Indication: PRODUCT USED FOR UNKNOWN INDICATION
     Dosage: UNK UNK, UNKNOWN FREQ.
     Route: 065

REACTIONS (6)
  - Angioedema [Unknown]
  - Stevens-Johnson syndrome [Recovering/Resolving]
  - Respiratory disorder [Unknown]
  - Stomatitis [Unknown]
  - Obstructive airways disorder [Unknown]
  - Ascites [Unknown]

NARRATIVE: CASE EVENT DATE: 19961204
